FAERS Safety Report 10247862 (Version 2)
Quarter: 2014Q2

REPORT INFORMATION
  Report Type: Spontaneous
  Country: US (occurrence: US)
  Receive Date: 20140619
  Receipt Date: 20140625
  Transmission Date: 20141212
  Serious: Yes (Other)
  Sender: FDA-Public Use
  Company Number: US-PFIZER INC-2014165414

PATIENT
  Age: 50 Year
  Sex: Female
  Weight: 68.03 kg

DRUGS (3)
  1. PREMPRO [Suspect]
     Indication: MENOPAUSAL SYMPTOMS
     Dosage: ESTROGENS CONJUGATED 0.625 MG/ MEDROXYPROGESTERONE ACETATE 2.5 MG, 1X/DAY
     Route: 048
     Dates: start: 201405, end: 20140615
  2. PREMPRO [Suspect]
     Indication: INSOMNIA
  3. PREMPRO [Suspect]
     Indication: HOT FLUSH

REACTIONS (8)
  - Diverticulitis [Not Recovered/Not Resolved]
  - Nausea [Not Recovered/Not Resolved]
  - Back pain [Not Recovered/Not Resolved]
  - Abdominal distension [Not Recovered/Not Resolved]
  - Abdominal pain upper [Not Recovered/Not Resolved]
  - Vision blurred [Unknown]
  - Pain [Unknown]
  - Activities of daily living impaired [Unknown]
